FAERS Safety Report 14437767 (Version 1)
Quarter: 2018Q1

REPORT INFORMATION
  Report Type: Spontaneous
  Country: US (occurrence: US)
  Receive Date: 20180125
  Receipt Date: 20180125
  Transmission Date: 20180509
  Serious: No
  Sender: FDA-Public Use
  Company Number: US-ABBVIE-17K-163-1926772-00

PATIENT
  Sex: Female

DRUGS (1)
  1. HUMIRA [Suspect]
     Active Substance: ADALIMUMAB
     Indication: PSORIATIC ARTHROPATHY
     Route: 058

REACTIONS (14)
  - Insomnia [Unknown]
  - Dyspnoea [Unknown]
  - Mobility decreased [Unknown]
  - Joint range of motion decreased [Unknown]
  - Asthenia [Unknown]
  - Skin irritation [Unknown]
  - Fatigue [Unknown]
  - Arthralgia [Unknown]
  - Loss of personal independence in daily activities [Unknown]
  - Emotional disorder [Unknown]
  - Pain [Unknown]
  - Psychiatric symptom [Unknown]
  - Depression [Unknown]
  - Psoriatic arthropathy [Unknown]
